FAERS Safety Report 7165173-9 (Version None)
Quarter: 2010Q4

REPORT INFORMATION
  Report Type: 
  Country: None (occurrence: None)
  Receive Date: 20101215
  Receipt Date: 20091218
  Transmission Date: 20110411
  Serious: No
  Sender: FDA-Public Use
  Company Number: US-AMGEN-TCS381537

PATIENT

DRUGS (3)
  1. ENBREL [Suspect]
     Indication: RHEUMATOID ARTHRITIS
     Dosage: 50 MG, QWK
     Route: 058
     Dates: start: 20091209
  2. CYCLOSPORINE [Concomitant]
     Dosage: 100 MG, QD
     Route: 048
  3. METHOTREXATE [Concomitant]
     Dosage: 1.25 MG, 3 TIMES/WK
     Route: 048

REACTIONS (1)
  - INJECTION SITE PAIN [None]
